FAERS Safety Report 9476237 (Version 5)
Quarter: 2013Q4

REPORT INFORMATION
  Report Type: Spontaneous
  Country: PL (occurrence: None)
  Receive Date: 20130808
  Receipt Date: 20131022
  Transmission Date: 20140711
  Serious: Yes (Other)
  Sender: FDA-Public Use
  Company Number: 2013036936

PATIENT
  Age: 54 Year
  Sex: Male

DRUGS (8)
  1. BERIPLEX [Suspect]
     Indication: FACTOR X DEFICIENCY
     Route: 042
     Dates: start: 20130609, end: 20130610
  2. BERIPLEX [Suspect]
     Indication: FACTOR VIII DEFICIENCY
     Route: 042
     Dates: start: 20130609, end: 20130610
  3. POLTRAM (TRAMADOL HYDROCHLORIDE) [Concomitant]
  4. TERTENSIF (INDAPAMIDE) [Concomitant]
  5. BIOSOTAL (SOTALOL HYDROCHLORIDE) [Concomitant]
  6. PRINIVIL (LISINOPRIL) [Concomitant]
  7. VENLAFAXINE (VENLAFAXINE) [Concomitant]
  8. RELANIUM /00011502/ (CHLORDIAZEPOXIDE HYDROCHLORIDE) [Concomitant]

REACTIONS (8)
  - Angina pectoris [None]
  - Dyspnoea [None]
  - Headache [None]
  - Off label use [None]
  - Angina pectoris [None]
  - Hypersensitivity [None]
  - No reaction on previous exposure to drug [None]
  - Drug interaction [None]
